FAERS Safety Report 8414648-0 (Version None)
Quarter: 2012Q2

REPORT INFORMATION
  Report Type: 
  Country: None (occurrence: None)
  Receive Date: 20120605
  Receipt Date: 20120530
  Transmission Date: 20120825
  Serious: Yes (Hospitalization, Other)
  Sender: FDA-Public Use
  Company Number: BR-PFIZER INC-2012130909

PATIENT
  Age: 47 Year
  Sex: Female

DRUGS (8)
  1. SIMVASTATIN [Concomitant]
  2. CYMBALTA [Concomitant]
  3. LEVOTHYROXINE SODIUM [Concomitant]
  4. CLONAZEPAM [Concomitant]
  5. NEURONTIN [Concomitant]
  6. LYRICA [Suspect]
     Indication: FIBROMYALGIA
     Dosage: 75 MG (ONE CAPSULE), 1X/DAY
     Route: 048
     Dates: start: 20080101
  7. CYCLOBENZAPRINE HYDROCHLORIDE [Concomitant]
  8. DEPAKOTE [Concomitant]

REACTIONS (8)
  - PAIN [None]
  - SOMNOLENCE [None]
  - THYROID DISORDER [None]
  - MOTOR DYSFUNCTION [None]
  - BLOOD CHOLESTEROL INCREASED [None]
  - SENSORY LOSS [None]
  - CEREBROVASCULAR ACCIDENT [None]
  - FIBROMYALGIA [None]
